FAERS Safety Report 16585239 (Version 1)
Quarter: 2019Q3

REPORT INFORMATION
  Report Type: Spontaneous
  Country: HR (occurrence: HR)
  Receive Date: 20190717
  Receipt Date: 20190717
  Transmission Date: 20191004
  Serious: Yes (Death, Hospitalization)
  Sender: FDA-Public Use
  Company Number: HR-MYLANLABS-2019M1065598

PATIENT
  Age: 65 Year
  Sex: Male

DRUGS (4)
  1. CYCLOSPORINE. [Interacting]
     Active Substance: CYCLOSPORINE
     Indication: IMMUNOSUPPRESSANT DRUG THERAPY
     Dosage: INITIAL DOSAGE NOT STATED; HE WAS RECEIVING CICLOSPORIN 70MG TWICE DAILY 1 MONTH FOLLOWING THE IN...
     Route: 065
  2. ERLOTINIB [Interacting]
     Active Substance: ERLOTINIB
     Indication: LUNG ADENOCARCINOMA
     Route: 065
  3. MYCOPHENOLATE MOFETIL. [Suspect]
     Active Substance: MYCOPHENOLATE MOFETIL
     Indication: IMMUNOSUPPRESSANT DRUG THERAPY
     Route: 065
  4. PREDNISOLONE. [Suspect]
     Active Substance: PREDNISOLONE
     Indication: IMMUNOSUPPRESSANT DRUG THERAPY
     Dosage: HAD BEEN RECEIVING AT LOW DOSE
     Route: 065

REACTIONS (2)
  - Lung adenocarcinoma [Fatal]
  - Malignant neoplasm progression [Fatal]
